FAERS Safety Report 11359093 (Version 1)
Quarter: 2015Q3

REPORT INFORMATION
  Report Type: Spontaneous
  Country: US (occurrence: None)
  Receive Date: 20150722
  Receipt Date: 20150722
  Transmission Date: 20151125
  Serious: Yes (Other)
  Sender: FDA-Public Use
  Company Number: 2014AP006164

PATIENT

DRUGS (1)
  1. OXCARBAZEPINE (OXCARBAZEPINE) TABLET, 300MG [Suspect]
     Active Substance: OXCARBAZEPINE
     Indication: AUTISM SPECTRUM DISORDER

REACTIONS (1)
  - Drug hypersensitivity [None]
